FAERS Safety Report 5099848-2 (Version None)
Quarter: 2006Q3

REPORT INFORMATION
  Report Type: 
  Country: None (occurrence: None)
  Receive Date: 20060906
  Receipt Date: 20060906
  Transmission Date: 20061208
  Serious: Yes (Hospitalization)
  Sender: FDA-Public Use
  Company Number: None

PATIENT
  Sex: Female
  Weight: 53.52 kg

DRUGS (2)
  1. CISPLATIN [Suspect]
     Dosage: 50 MG/M2
  2. PACLITAXEL [Suspect]
     Dosage: 135 MG/M2 IV OVER 24 HOURS EVERY 21 DAYS
     Route: 042

REACTIONS (8)
  - DYSPNOEA [None]
  - FEBRILE NEUTROPENIA [None]
  - HYPOTENSION [None]
  - MENTAL STATUS CHANGES [None]
  - PANCYTOPENIA [None]
  - PNEUMOTHORAX [None]
  - POST PROCEDURAL COMPLICATION [None]
  - SEPSIS [None]
